FAERS Safety Report 6366636-6 (Version None)
Quarter: 2009Q3

REPORT INFORMATION
  Report Type: 
  Country: None (occurrence: None)
  Receive Date: 20090915
  Receipt Date: 20090901
  Transmission Date: 20100115
  Serious: Yes (Disabling, Other)
  Sender: FDA-Public Use
  Company Number: 2009S1015536

PATIENT
  Age: 7 Year
  Sex: Male

DRUGS (2)
  1. VALPROATE SODIUM [Suspect]
     Indication: EPILEPSY
     Dosage: 200 MG; TWICE A DAY ORAL
     Route: 048
     Dates: start: 20090715, end: 20090822
  2. MIDAZOLAM HCL [Concomitant]

REACTIONS (2)
  - EXTRAPYRAMIDAL DISORDER [None]
  - TONGUE PARALYSIS [None]
